FAERS Safety Report 14110034 (Version 1)
Quarter: 2017Q4

REPORT INFORMATION
  Report Type: Spontaneous
  Country: US (occurrence: US)
  Receive Date: 20171020
  Receipt Date: 20171020
  Transmission Date: 20180321
  Serious: No
  Sender: FDA-Public Use
  Company Number: US-TEVA-803832USA

PATIENT

DRUGS (3)
  1. TRI-SPRINTEC [Suspect]
     Active Substance: ETHINYL ESTRADIOL\NORGESTIMATE
     Dosage: NORGESTIMATE/ETHINYLESTRADIOL : 0.180 MG/ 0.035 MG;
  2. TRI-SPRINTEC [Suspect]
     Active Substance: ETHINYL ESTRADIOL\NORGESTIMATE
     Dosage: NORGESTIMATE/ETHINYLESTRADIOL : 0.215 MG / 0.035 MG;
  3. TRI-SPRINTEC [Suspect]
     Active Substance: ETHINYL ESTRADIOL\NORGESTIMATE
     Dosage: NORGESTIMATE/ETHINYLESTRADIOL : 0.250 MG / 0.035 MG

REACTIONS (2)
  - Drug effect incomplete [Unknown]
  - Product substitution issue [Unknown]
